FAERS Safety Report 16894463 (Version 2)
Quarter: 2019Q4

REPORT INFORMATION
  Report Type: Spontaneous
  Country: US (occurrence: US)
  Receive Date: 20191008
  Receipt Date: 20191016
  Transmission Date: 20200122
  Serious: No
  Sender: FDA-Public Use
  Company Number: US-PFIZER INC-2019430718

PATIENT
  Age: 63 Year
  Sex: Female

DRUGS (2)
  1. CHANTIX [Suspect]
     Active Substance: VARENICLINE TARTRATE
     Dosage: UNK (RECEIVED THE STARTER AND TWO MONTH CONTINUATION)
     Dates: start: 20180728
  2. CHANTIX [Suspect]
     Active Substance: VARENICLINE TARTRATE
     Dosage: UNK (DOING REALLY WELL THIS TIME)
     Dates: start: 20190603

REACTIONS (1)
  - Drug ineffective [Unknown]
